FAERS Safety Report 6604402-4 (Version None)
Quarter: 2010Q1

REPORT INFORMATION
  Report Type: 
  Country: None (occurrence: None)
  Receive Date: 20100226
  Receipt Date: 20090918
  Transmission Date: 20100710
  Serious: No
  Sender: FDA-Public Use
  Company Number: A0808542A

PATIENT
  Sex: Male

DRUGS (2)
  1. LAMICTAL CD [Suspect]
  2. UNKNOWN [Concomitant]

REACTIONS (2)
  - COGNITIVE DISORDER [None]
  - FEELING ABNORMAL [None]
